FAERS Safety Report 5832360-9 (Version None)
Quarter: 2008Q3

REPORT INFORMATION
  Report Type: 
  Country: None (occurrence: None)
  Receive Date: 20080804
  Receipt Date: 20080730
  Transmission Date: 20090109
  Serious: Yes (Hospitalization)
  Sender: FDA-Public Use
  Company Number: FR-AVENTIS-200812864FR

PATIENT
  Age: 41 Year
  Sex: Female

DRUGS (6)
  1. ARAVA [Suspect]
     Indication: DRUG USE FOR UNKNOWN INDICATION
     Route: 048
     Dates: start: 20080612, end: 20080627
  2. MABTHERA [Suspect]
     Indication: DRUG USE FOR UNKNOWN INDICATION
     Route: 042
     Dates: start: 20080612, end: 20080624
  3. CORTANCYL [Concomitant]
     Route: 048
  4. NEXIUM [Concomitant]
     Route: 048
  5. ATARAX [Concomitant]
  6. DOLIPRANE [Concomitant]

REACTIONS (11)
  - ACNE [None]
  - ANOREXIA [None]
  - GENERAL PHYSICAL HEALTH DETERIORATION [None]
  - LYMPHADENOPATHY [None]
  - MOUTH ULCERATION [None]
  - NAUSEA [None]
  - NIGHT SWEATS [None]
  - PALLOR [None]
  - PYREXIA [None]
  - VOMITING [None]
  - WEIGHT DECREASED [None]
